FAERS Safety Report 6216177-1 (Version None)
Quarter: 2009Q2

REPORT INFORMATION
  Report Type: 
  Country: None (occurrence: None)
  Receive Date: 20090605
  Receipt Date: 20090527
  Transmission Date: 20091009
  Serious: Yes (Hospitalization, Other)
  Sender: FDA-Public Use
  Company Number: DZ-NOVOPROD-286815

PATIENT
  Age: 37 Year
  Sex: Female
  Weight: 75 kg

DRUGS (4)
  1. NOVOLOG [Suspect]
     Indication: INSULIN-REQUIRING TYPE 2 DIABETES MELLITUS
     Dosage: 18 (6X3/DAY AT MEAL TIME) IU, QD
     Route: 058
     Dates: start: 20080401
  2. GLUCOPHAGE [Concomitant]
     Dosage: 2550 MG, QD
     Route: 048
     Dates: start: 20090101
  3. NPH INSULIN [Concomitant]
     Indication: INSULIN-REQUIRING TYPE 2 DIABETES MELLITUS
     Dosage: 10 IU, QD AT BEDTIME
     Route: 058
     Dates: start: 20090101
  4. ASPIRIN [Concomitant]
     Dosage: 100 MG, QD
     Dates: start: 20090101

REACTIONS (2)
  - DRUG EXPOSURE DURING PREGNANCY [None]
  - INTRA-UTERINE DEATH [None]
